FAERS Safety Report 22196726 (Version 1)
Quarter: 2023Q2

REPORT INFORMATION
  Report Type: Spontaneous
  Country: US (occurrence: None)
  Receive Date: 20230410
  Receipt Date: 20230410
  Transmission Date: 20230721
  Serious: Yes (Disabling)
  Sender: FDA-Public Use
  Company Number: None

PATIENT
  Age: 70 Year
  Sex: Female
  Weight: 72.45 kg

DRUGS (7)
  1. CITALOPRAM HYDROBROMIDE [Suspect]
     Active Substance: CITALOPRAM HYDROBROMIDE
     Indication: Anxiety
     Dosage: OTHER QUANTITY : 1 TABLET(S);?FREQUENCY : DAILY;?
     Route: 048
  2. Citalopram 20 mg once a day [Concomitant]
  3. lisinopril-HCTZ 20-12.5 mg once a day [Concomitant]
  4. Hydroxychloroquine 200 mg ( take 2 to = 400 mg for RA once a day) [Concomitant]
  5. zaleplon 10 mg as needed [Concomitant]
  6. VITAMINS [Concomitant]
     Active Substance: VITAMINS
  7. one baby aspirin a day [Concomitant]

REACTIONS (5)
  - Therapy interrupted [None]
  - Depression [None]
  - Anxiety [None]
  - Anxiety [None]
  - Osteoporosis [None]
